FAERS Safety Report 9689434 (Version 3)
Quarter: 2014Q2

REPORT INFORMATION
  Report Type: Spontaneous
  Country: US (occurrence: US)
  Receive Date: 20131114
  Receipt Date: 20140410
  Transmission Date: 20141212
  Serious: Yes (Other)
  Sender: FDA-Public Use
  Company Number: US-RB-060467-13

PATIENT
  Age: 51 Year
  Sex: Female

DRUGS (5)
  1. SUBOXONE FILM [Suspect]
     Indication: DRUG DEPENDENCE
     Dosage: SUBOXONE FILM
     Route: 060
     Dates: start: 201101
  2. WELLBUTRIN XL [Concomitant]
     Indication: DEPRESSION
     Dosage: FREQUENCY NOT PROVIDED; TAKEN DAILY
     Route: 048
  3. LEXAPRO [Concomitant]
     Indication: DEPRESSION
     Dosage: TAKEN DAILY
     Route: 048
  4. PRILOSEC [Concomitant]
     Indication: PRODUCT USED FOR UNKNOWN INDICATION
     Dosage: TAKEN DAILY; DOSING DETAILS UNKNOWN
     Route: 048
  5. METFORMIN [Concomitant]
     Indication: GLUCOSE TOLERANCE IMPAIRED
     Dosage: DOSING DETAILS UNKNOWN
     Route: 048

REACTIONS (9)
  - Goitre [Recovered/Resolved]
  - Thyroid neoplasm [Recovered/Resolved]
  - Procedural pain [Recovered/Resolved]
  - Hypothyroidism [Not Recovered/Not Resolved]
  - Tooth loss [Recovered/Resolved]
  - Fall [Recovered/Resolved]
  - Tooth fracture [Unknown]
  - Bone contusion [Unknown]
  - Chest pain [Not Recovered/Not Resolved]
